FAERS Safety Report 4288696-9 (Version None)
Quarter: 2004Q1

REPORT INFORMATION
  Report Type: 
  Country: None (occurrence: None)
  Receive Date: 20040205
  Receipt Date: 20040116
  Transmission Date: 20041129
  Serious: Yes (Hospitalization)
  Sender: FDA-Public Use
  Company Number: FR_040103430

PATIENT
  Age: 49 Year
  Sex: Male

DRUGS (1)
  1. CEFACLOR [Suspect]
     Indication: PYREXIA
     Dosage: 3 DSG FORM/DAY
     Dates: start: 20030101

REACTIONS (1)
  - LEUKAEMIA [None]
